FAERS Safety Report 10668742 (Version 1)
Quarter: 2014Q4

REPORT INFORMATION
  Report Type: Spontaneous
  Country: US (occurrence: US)
  Receive Date: 20141222
  Receipt Date: 20141222
  Transmission Date: 20150529
  Serious: No
  Sender: FDA-Public Use
  Company Number: US-PFIZER INC-2014350913

PATIENT
  Age: 33 Year
  Sex: Female
  Weight: 63.49 kg

DRUGS (4)
  1. LYRICA [Suspect]
     Active Substance: PREGABALIN
     Indication: FIBROMYALGIA
     Dosage: 75 MG, 2X/DAY
  2. LYRICA [Suspect]
     Active Substance: PREGABALIN
     Dosage: 150 MG, 2X/DAY
  3. HYDROCHLOROTHIAZIDE. [Concomitant]
     Active Substance: HYDROCHLOROTHIAZIDE
     Indication: HYPERTENSION
     Dosage: 50 MG, 1X/DAY
  4. FISH OIL [Concomitant]
     Active Substance: FISH OIL

REACTIONS (3)
  - Pain [Not Recovered/Not Resolved]
  - Activities of daily living impaired [Unknown]
  - Discomfort [Unknown]
